FAERS Safety Report 4468003-9 (Version None)
Quarter: 2004Q4

REPORT INFORMATION
  Report Type: 
  Country: None (occurrence: None)
  Receive Date: 20041004
  Receipt Date: 20041004
  Transmission Date: 20050328
  Serious: Yes (Other)
  Sender: FDA-Public Use
  Company Number: None

PATIENT
  Age: 66 Year
  Sex: Male
  Weight: 81.2 kg

DRUGS (13)
  1. TERAZOSIN HCL [Suspect]
  2. HYDROXYPROPYL ME CELLULOSE OPH SOLN [Concomitant]
  3. NAPROXEN [Concomitant]
  4. OMEPRAZOLE [Concomitant]
  5. ZOLPIDEM TARTRATE [Concomitant]
  6. NYSTATIN [Concomitant]
  7. PAROXETINE HCL [Concomitant]
  8. RABEPRAZOLE NA [Concomitant]
  9. TERAZOSIN HCL [Concomitant]
  10. ALPRAZOLAM [Concomitant]
  11. CLOTRIAMZOLE [Concomitant]
  12. FLUNISOLIDE [Concomitant]
  13. HYDROXYUREA [Concomitant]

REACTIONS (1)
  - HYPOTENSION [None]
